FAERS Safety Report 9235838 (Version 1)
Quarter: 2013Q2

REPORT INFORMATION
  Report Type: Spontaneous
  Country: US (occurrence: US)
  Receive Date: 20130417
  Receipt Date: 20130417
  Transmission Date: 20140414
  Serious: Yes (Hospitalization)
  Sender: FDA-Public Use
  Company Number: US-AMGEN-USASP2013026209

PATIENT
  Sex: Female

DRUGS (7)
  1. SENSIPAR [Suspect]
     Indication: HYPERPARATHYROIDISM
     Dosage: 30 MG, QD
  2. WARFARIN [Concomitant]
  3. FUROSEMIDE [Concomitant]
  4. HYDROXYUREA [Concomitant]
  5. KEPPRA [Concomitant]
  6. LOPRESSOR [Concomitant]
  7. ZOLOFT [Concomitant]

REACTIONS (1)
  - Sepsis [Unknown]
